FAERS Safety Report 8474315-4 (Version None)
Quarter: 2012Q2

REPORT INFORMATION
  Report Type: 
  Country: None (occurrence: None)
  Receive Date: 20120628
  Receipt Date: 20120620
  Transmission Date: 20120825
  Serious: Yes (Other)
  Sender: FDA-Public Use
  Company Number: US-US-EMD SERONO, INC.-7141269

PATIENT
  Sex: Female

DRUGS (4)
  1. REBIF [Suspect]
     Indication: MULTIPLE SCLEROSIS
     Route: 058
     Dates: start: 20110811
  2. CYMBALTA [Concomitant]
     Indication: FEELING ABNORMAL
     Dates: end: 20120517
  3. EFFEXOR [Concomitant]
     Indication: FEELING ABNORMAL
     Dates: start: 20120517
  4. BACLOFEN [Concomitant]
     Indication: MUSCLE SPASTICITY
     Dates: start: 20111116

REACTIONS (2)
  - BASEDOW'S DISEASE [None]
  - INJECTION SITE PAIN [None]
